FAERS Safety Report 5841818-8 (Version None)
Quarter: 2008Q3

REPORT INFORMATION
  Report Type: 
  Country: None (occurrence: None)
  Receive Date: 20080811
  Receipt Date: 20080811
  Transmission Date: 20090109
  Serious: Yes (Life-Threatening, Hospitalization, Disabling)
  Sender: FDA-Public Use
  Company Number: None

PATIENT
  Age: 34 Year
  Sex: Female
  Weight: 92.9874 kg

DRUGS (1)
  1. FLOVENT [Suspect]
     Indication: ASTHMA
     Dosage: 4 PUFFS DAILY PO
     Route: 048
     Dates: start: 19990714, end: 20080715

REACTIONS (18)
  - ABDOMINAL DISTENSION [None]
  - ADRENAL DISORDER [None]
  - ANXIETY [None]
  - ASTHENIA [None]
  - AUTOIMMUNE THYROIDITIS [None]
  - BLOOD CORTISOL DECREASED [None]
  - BLOOD PRESSURE FLUCTUATION [None]
  - CUSHING'S SYNDROME [None]
  - DEPRESSION [None]
  - DYSSTASIA [None]
  - ENDOCRINE DISORDER [None]
  - GENERAL PHYSICAL HEALTH DETERIORATION [None]
  - MOOD ALTERED [None]
  - SLEEP DISORDER [None]
  - SWELLING [None]
  - TREMOR [None]
  - VOMITING [None]
  - WEIGHT INCREASED [None]
